FAERS Safety Report 4870226-1 (Version None)
Quarter: 2005Q4

REPORT INFORMATION
  Report Type: 
  Country: None (occurrence: None)
  Receive Date: 20051228
  Receipt Date: 20050716
  Transmission Date: 20060501
  Serious: No
  Sender: FDA-Public Use
  Company Number: 200507IM000314

PATIENT
  Age: 41 Year
  Sex: Male
  Weight: 131.5431 kg

DRUGS (3)
  1. INFERGEN [Suspect]
     Indication: HEPATITIS C
     Dosage: SEE IMAGE
     Route: 058
     Dates: start: 20050530, end: 20051201
  2. INFERGEN [Suspect]
     Indication: HEPATITIS C
     Dosage: SEE IMAGE
     Route: 058
     Dates: start: 20051201
  3. MOTRIN [Concomitant]

REACTIONS (8)
  - ARTHROPOD BITE [None]
  - BLOOD GLUCOSE INCREASED [None]
  - ERYTHEMA [None]
  - HAEMATEMESIS [None]
  - HYPERPYREXIA [None]
  - PAIN [None]
  - RASH PRURITIC [None]
  - SKIN SWELLING [None]
